FAERS Safety Report 5995742-0 (Version None)
Quarter: 2008Q4

REPORT INFORMATION
  Report Type: 
  Country: None (occurrence: None)
  Receive Date: 20081212
  Receipt Date: 20081203
  Transmission Date: 20090506
  Serious: Yes (Hospitalization)
  Sender: FDA-Public Use
  Company Number: US-PFIZER INC-2008076363

PATIENT
  Sex: Male
  Weight: 83.46 kg

DRUGS (8)
  1. CELECOXIB [Suspect]
     Indication: OSTEOARTHRITIS
     Route: 048
     Dates: start: 20080417, end: 20080909
  2. LOTREL [Concomitant]
     Route: 048
     Dates: start: 20010619
  3. LIPITOR [Concomitant]
     Route: 048
     Dates: start: 20050607
  4. MIACALCIN [Concomitant]
     Route: 048
     Dates: start: 20050411
  5. MONTELUKAST SODIUM [Concomitant]
     Route: 048
     Dates: start: 19910101
  6. MAXAIR [Concomitant]
     Route: 055
     Dates: start: 19910101
  7. SPIRIVA [Concomitant]
     Route: 055
     Dates: start: 19910101
  8. ALBUTEROL [Concomitant]
     Route: 055
     Dates: start: 19910101

REACTIONS (2)
  - CEREBROVASCULAR ACCIDENT [None]
  - NEPHROLITHIASIS [None]
